FAERS Safety Report 14998261 (Version 3)
Quarter: 2018Q3

REPORT INFORMATION
  Report Type: Spontaneous
  Country: JP (occurrence: JP)
  Receive Date: 20180611
  Receipt Date: 20180717
  Transmission Date: 20181010
  Serious: Yes (Other)
  Sender: FDA-Public Use
  Company Number: JP-ALLERGAN-1830229US

PATIENT
  Age: 4 Decade
  Sex: Female

DRUGS (1)
  1. BOTOX [Suspect]
     Active Substance: ONABOTULINUMTOXINA
     Indication: BLEPHAROSPASM
     Dosage: UNK UNK, SINGLE
     Route: 030

REACTIONS (4)
  - Eyelid oedema [Recovered/Resolved]
  - Internal haemorrhage [Recovered/Resolved]
  - Diplopia [Recovering/Resolving]
  - Eyelid ptosis [Recovering/Resolving]
